FAERS Safety Report 7267769-2 (Version None)
Quarter: 2011Q1

REPORT INFORMATION
  Report Type: 
  Country: None (occurrence: None)
  Receive Date: 20110201
  Receipt Date: 20110127
  Transmission Date: 20110831
  Serious: Yes (Other)
  Sender: FDA-Public Use
  Company Number: A0871310A

PATIENT
  Sex: Female

DRUGS (2)
  1. XELODA [Concomitant]
  2. TYKERB [Suspect]
     Dosage: 750MG PER DAY
     Route: 048
     Dates: start: 20100521

REACTIONS (5)
  - MALAISE [None]
  - CARDIAC DISORDER [None]
  - FATIGUE [None]
  - DIARRHOEA [None]
  - METASTASES TO CENTRAL NERVOUS SYSTEM [None]
